FAERS Safety Report 8046760-2 (Version None)
Quarter: 2012Q1

REPORT INFORMATION
  Report Type: 
  Country: None (occurrence: None)
  Receive Date: 20120116
  Receipt Date: 20120106
  Transmission Date: 20120608
  Serious: Yes (Hospitalization)
  Sender: FDA-Public Use
  Company Number: US-BIOGENIDEC-2011BI048666

PATIENT
  Age: 47 Year
  Sex: Female

DRUGS (10)
  1. CALCIUM [Concomitant]
     Indication: ROUTINE HEALTH MAINTENANCE
  2. TYSABRI [Suspect]
     Indication: MULTIPLE SCLEROSIS
     Route: 042
     Dates: start: 20111014
  3. DULCOLAX [Concomitant]
     Indication: CONSTIPATION
  4. KEPPRA [Concomitant]
     Indication: CONVULSION
  5. PHENERGAN [Concomitant]
     Indication: NAUSEA
  6. BACLOFEN [Concomitant]
     Indication: MUSCLE SPASTICITY
  7. FERROUS SULFATE TAB [Concomitant]
     Indication: ANAEMIA
  8. DITROPAN [Concomitant]
     Indication: NEUROGENIC BLADDER
  9. POTASSIUM CHLORIDE [Concomitant]
     Indication: HYPOKALAEMIA
  10. VITAMIN D [Concomitant]
     Indication: VITAMIN D DECREASED

REACTIONS (1)
  - MULTIPLE SCLEROSIS RELAPSE [None]
